FAERS Safety Report 11968963 (Version 1)
Quarter: 2016Q1

REPORT INFORMATION
  Report Type: Spontaneous
  Country: US (occurrence: None)
  Receive Date: 20160127
  Receipt Date: 20160127
  Transmission Date: 20160526
  Serious: No
  Sender: FDA-Public Use
  Company Number: None

PATIENT
  Sex: Male

DRUGS (1)
  1. AMARYL [Suspect]
     Active Substance: GLIMEPIRIDE

REACTIONS (10)
  - Anxiety [None]
  - Emotional distress [None]
  - Depression [None]
  - Paranoia [None]
  - Stress [None]
  - Partner stress [None]
  - Glycosylated haemoglobin increased [None]
  - Suicidal ideation [None]
  - Blood glucose increased [None]
  - Blood glucose fluctuation [None]
